FAERS Safety Report 14592753 (Version 1)
Quarter: 2018Q1

REPORT INFORMATION
  Report Type: Report from Study
  Country: DE (occurrence: DE)
  Receive Date: 20180302
  Receipt Date: 20180302
  Transmission Date: 20180509
  Serious: Yes (Other)
  Sender: FDA-Public Use
  Company Number: DE-EISAI MEDICAL RESEARCH-EC-2018-036593

PATIENT
  Sex: Female

DRUGS (2)
  1. ERIBULIN [Suspect]
     Active Substance: ERIBULIN
     Indication: NEOPLASM
     Route: 041
  2. SORAFENIB [Suspect]
     Active Substance: SORAFENIB
     Indication: NEOPLASM
     Route: 048

REACTIONS (1)
  - Acute coronary syndrome [Recovered/Resolved]
